FAERS Safety Report 11078101 (Version 1)
Quarter: 2015Q2

REPORT INFORMATION
  Report Type: Spontaneous
  Country: US (occurrence: None)
  Receive Date: 20150429
  Receipt Date: 20150429
  Transmission Date: 20150821
  Serious: No
  Sender: FDA-Public Use
  Company Number: None

PATIENT
  Sex: Male

DRUGS (16)
  1. ONDANSETRON [Concomitant]
     Active Substance: ONDANSETRON
  2. COENZYME Q10 [Concomitant]
     Active Substance: UBIDECARENONE
  3. WARFARIN [Concomitant]
     Active Substance: WARFARIN
  4. GENTAMICIN. [Suspect]
     Active Substance: GENTAMICIN
  5. OMEGA 3 [Concomitant]
     Active Substance: OMEGA-3 FATTY ACIDS
  6. BENAZEPRIL [Concomitant]
     Active Substance: BENAZEPRIL\BENAZEPRIL HYDROCHLORIDE
  7. CAPECITABINE. [Concomitant]
     Active Substance: CAPECITABINE
  8. MONTELUKAST [Concomitant]
     Active Substance: MONTELUKAST SODIUM
  9. CAPECITABINE 500MG TEVA PHARMACEUTICALS [Suspect]
     Active Substance: CAPECITABINE
     Indication: NEOPLASM MALIGNANT
     Route: 048
     Dates: start: 20140401
  10. SULFAMETHOXAZOLE-TRIMETHOPRIM (SMZ) [Concomitant]
     Active Substance: SULFAMETHOXAZOLE\TRIMETHOPRIM
  11. XELODA [Concomitant]
     Active Substance: CAPECITABINE
  12. TOPIRAMATE. [Concomitant]
     Active Substance: TOPIRAMATE
  13. NAPROXEN. [Concomitant]
     Active Substance: NAPROXEN
  14. NORTRIPTYLIN [Concomitant]
     Active Substance: NORTRIPTYLINE
  15. CIPRO [Concomitant]
     Active Substance: CIPROFLOXACIN HYDROCHLORIDE
  16. PROCHLORPER [Concomitant]

REACTIONS (4)
  - Neuropathy peripheral [None]
  - Skin exfoliation [None]
  - Arthralgia [None]
  - Myalgia [None]
